FAERS Safety Report 4893593-1 (Version None)
Quarter: 2005Q4

REPORT INFORMATION
  Report Type: 
  Country: None (occurrence: None)
  Receive Date: 20051223
  Receipt Date: 20051001
  Transmission Date: 20060501
  Serious: No
  Sender: FDA-Public Use
  Company Number: 2005PV003222

PATIENT
  Age: 60 Year
  Sex: Female

DRUGS (8)
  1. SYMLIN [Suspect]
     Indication: DIABETES MELLITUS INSULIN-DEPENDENT
     Dosage: 45 MCG;SC ; 60 MCG;TID;SC ; 60 MCG;BID;SC ; 15 MCG;BID;SC
     Route: 058
     Dates: start: 20050901, end: 20050901
  2. SYMLIN [Suspect]
     Indication: DIABETES MELLITUS INSULIN-DEPENDENT
     Dosage: 45 MCG;SC ; 60 MCG;TID;SC ; 60 MCG;BID;SC ; 15 MCG;BID;SC
     Route: 058
     Dates: start: 20050901, end: 20050901
  3. SYMLIN [Suspect]
     Indication: DIABETES MELLITUS INSULIN-DEPENDENT
     Dosage: 45 MCG;SC ; 60 MCG;TID;SC ; 60 MCG;BID;SC ; 15 MCG;BID;SC
     Route: 058
     Dates: start: 20050920, end: 20050901
  4. SYMLIN [Suspect]
     Indication: DIABETES MELLITUS INSULIN-DEPENDENT
     Dosage: 45 MCG;SC ; 60 MCG;TID;SC ; 60 MCG;BID;SC ; 15 MCG;BID;SC
     Route: 058
     Dates: start: 20050901, end: 20050930
  5. SYNTHROID [Concomitant]
  6. LIPITOR [Concomitant]
  7. ZETIA [Concomitant]
  8. LISINOPRIL [Concomitant]

REACTIONS (2)
  - HYPOAESTHESIA [None]
  - NAUSEA [None]
